FAERS Safety Report 6788034-3 (Version None)
Quarter: 2010Q2

REPORT INFORMATION
  Report Type: 
  Country: None (occurrence: None)
  Receive Date: 20100623
  Receipt Date: 20080122
  Transmission Date: 20101027
  Serious: No
  Sender: FDA-Public Use
  Company Number: US-PFIZER INC-2007077252

PATIENT
  Sex: Female
  Weight: 98 kg

DRUGS (4)
  1. DEPO-PROVERA SUSPENSION/INJ [Suspect]
     Indication: ENDOMETRIAL CANCER
     Dosage: 1 EVERY 2 MONTHS
     Route: 030
     Dates: start: 20060808
  2. TOPROL-XL [Concomitant]
  3. LEVSIN [Concomitant]
  4. ZYRTEC [Concomitant]

REACTIONS (5)
  - HEADACHE [None]
  - INCORRECT DOSE ADMINISTERED [None]
  - INJECTION SITE ERYTHEMA [None]
  - INJECTION SITE PAIN [None]
  - NERVOUSNESS [None]
